FAERS Safety Report 19833300 (Version 1)
Quarter: 2021Q3

REPORT INFORMATION
  Report Type: Other
  Country: DE (occurrence: DE)
  Receive Date: 20210915
  Receipt Date: 20210915
  Transmission Date: 20211014
  Serious: Yes (Other)
  Sender: FDA-Public Use
  Company Number: DE-ROCHE-2860772

PATIENT
  Age: 27 Year
  Sex: Female
  Weight: 74 kg

DRUGS (5)
  1. RANITIC [Concomitant]
     Active Substance: RANITIDINE HYDROCHLORIDE
     Indication: PREMEDICATION
     Route: 042
     Dates: start: 20180827, end: 20201109
  2. OCRELIZUMAB. [Suspect]
     Active Substance: OCRELIZUMAB
     Indication: RELAPSING MULTIPLE SCLEROSIS
     Route: 042
     Dates: start: 20191104
  3. CIMETIDIN [Concomitant]
     Indication: PREMEDICATION
     Route: 042
     Dates: start: 20201109
  4. VENLAFAXIN [Concomitant]
     Active Substance: VENLAFAXINE HYDROCHLORIDE
     Indication: DEPRESSION
     Route: 048
     Dates: start: 201806, end: 201812
  5. OCRELIZUMAB. [Suspect]
     Active Substance: OCRELIZUMAB
     Route: 042
     Dates: start: 20180827, end: 20180910

REACTIONS (5)
  - Abscess oral [Recovered/Resolved]
  - Abscess limb [Recovered/Resolved]
  - Groin abscess [Recovered/Resolved]
  - Abscess limb [Unknown]
  - Depression [Unknown]

NARRATIVE: CASE EVENT DATE: 202106
